FAERS Safety Report 18434093 (Version 2)
Quarter: 2020Q4

REPORT INFORMATION
  Report Type: Report from Study
  Country: US (occurrence: US)
  Receive Date: 20201027
  Receipt Date: 20201219
  Transmission Date: 20210114
  Serious: Yes (Other)
  Sender: FDA-Public Use
  Company Number: US-B.I. PHARMACEUTICALS,INC./RIDGEFIELD-2020-MR-037381

PATIENT
  Age: 77 Year
  Sex: Male

DRUGS (1)
  1. OFEV [Suspect]
     Active Substance: NINTEDANIB
     Indication: IDIOPATHIC PULMONARY FIBROSIS
     Route: 048
     Dates: start: 20200713

REACTIONS (6)
  - Diarrhoea [Unknown]
  - Fatigue [Unknown]
  - Knee operation [Unknown]
  - Vomiting [Unknown]
  - Nausea [Unknown]
  - Eye operation [Unknown]

NARRATIVE: CASE EVENT DATE: 2020
